FAERS Safety Report 4996632-2 (Version None)
Quarter: 2006Q2

REPORT INFORMATION
  Report Type: 
  Country: None (occurrence: None)
  Receive Date: 20060509
  Receipt Date: 20060317
  Transmission Date: 20061013
  Serious: Yes (Other)
  Sender: FDA-Public Use
  Company Number: GB-JNJFOC-20060302068

PATIENT

DRUGS (4)
  1. CONCERTA [Suspect]
     Route: 048
  2. CONCERTA [Suspect]
     Route: 048
  3. CONCERTA [Suspect]
     Route: 048
  4. PARRAFIN, LIQUID [Concomitant]
     Indication: CONSTIPATION
     Dosage: AT NIGHT
     Route: 065

REACTIONS (2)
  - DECREASED APPETITE [None]
  - WEIGHT DECREASED [None]
